FAERS Safety Report 9666237 (Version 1)
Quarter: 2013Q4

REPORT INFORMATION
  Report Type: Report from Study
  Country: CO (occurrence: CO)
  Receive Date: 20131104
  Receipt Date: 20131104
  Transmission Date: 20140711
  Serious: Yes (Death, Hospitalization)
  Sender: FDA-Public Use
  Company Number: CO-SA-2013SA110683

PATIENT
  Age: 85 Year
  Sex: Female

DRUGS (2)
  1. LANTUS [Suspect]
     Indication: DIABETES MELLITUS
     Dosage: DOSE: 20-22 UNITS
     Route: 058
     Dates: start: 2010, end: 20130822
  2. APIDRA [Suspect]
     Indication: DIABETES MELLITUS
     Route: 058
     Dates: start: 2010, end: 20130822

REACTIONS (3)
  - Respiratory failure [Fatal]
  - Cardiac arrest [Fatal]
  - Asthma [Fatal]
